FAERS Safety Report 24253620 (Version 1)
Quarter: 2024Q3

REPORT INFORMATION
  Report Type: Spontaneous
  Country: US (occurrence: None)
  Receive Date: 20240826
  Receipt Date: 20240826
  Transmission Date: 20241017
  Serious: Yes (Other)
  Sender: Public
  Company Number: None

PATIENT
  Age: 73 Year
  Sex: Male

DRUGS (7)
  1. MESALAMINE [Suspect]
     Active Substance: MESALAMINE
     Indication: Colitis ulcerative
     Dosage: OTHER QUANTITY : 240 CAPSULE(S)?
     Route: 048
     Dates: start: 20240612
  2. TAMSULOSIN [Concomitant]
     Active Substance: TAMSULOSIN
  3. FENOFIBRATE [Concomitant]
     Active Substance: FENOFIBRATE
  4. LOSARTAN POTASSIUM [Concomitant]
     Active Substance: LOSARTAN POTASSIUM
  5. VITAMINS [Concomitant]
     Active Substance: VITAMINS
  6. GLUCOSAMINE [Concomitant]
     Active Substance: GLUCOSAMINE
  7. VITAMIN D [Concomitant]
     Active Substance: VITAMIN D NOS

REACTIONS (3)
  - Headache [None]
  - Flatulence [None]
  - Eructation [None]

NARRATIVE: CASE EVENT DATE: 20240820
